FAERS Safety Report 7797906-2 (Version None)
Quarter: 2011Q4

REPORT INFORMATION
  Report Type: 
  Country: None (occurrence: None)
  Receive Date: 20111005
  Receipt Date: 20110927
  Transmission Date: 20120403
  Serious: Yes (Hospitalization, Other)
  Sender: FDA-Public Use
  Company Number: IT-ABBOTT-11P-083-0854537-00

PATIENT
  Sex: Male

DRUGS (4)
  1. EN [Suspect]
     Indication: INTENTIONAL SELF-INJURY
  2. EN [Suspect]
     Indication: PERSONALITY DISORDER
     Dosage: 20ML TOTAL, (PRESCRIBED 40 DROPS DAILY)
     Route: 048
     Dates: start: 20110823, end: 20110823
  3. DEPAKENE [Suspect]
     Indication: PERSONALITY DISORDER
     Dosage: 45 UNITS TOTAL (PRESCRIBED 500MG 1 UNIT QD)
     Route: 048
     Dates: start: 20110823, end: 20110823
  4. DEPAKENE [Suspect]
     Indication: INTENTIONAL SELF-INJURY

REACTIONS (6)
  - OVERDOSE [None]
  - INTENTIONAL SELF-INJURY [None]
  - SOPOR [None]
  - INTENTIONAL OVERDOSE [None]
  - HEART RATE DECREASED [None]
  - BRADYCARDIA [None]
